FAERS Safety Report 18801605 (Version 1)
Quarter: 2021Q1

REPORT INFORMATION
  Report Type: Spontaneous
  Country: US (occurrence: US)
  Receive Date: 20210128
  Receipt Date: 20210128
  Transmission Date: 20210419
  Serious: Yes (Life-Threatening, Disabling)
  Sender: FDA-Public Use
  Company Number: US-IGSA-SR10009958

PATIENT
  Age: 54 Year
  Sex: Female

DRUGS (1)
  1. PROFILNINE [Suspect]
     Active Substance: FACTOR IX COMPLEX
     Indication: PROCOAGULANT THERAPY
     Dosage: UNK UNK, SINGLE
     Route: 065

REACTIONS (4)
  - Electrocardiogram ST segment elevation [Recovered/Resolved with Sequelae]
  - Cardiac arrest [Recovered/Resolved with Sequelae]
  - Ischaemic stroke [Recovered/Resolved with Sequelae]
  - Acute myocardial infarction [Recovered/Resolved with Sequelae]
